FAERS Safety Report 9046227 (Version 2)
Quarter: 2013Q1

REPORT INFORMATION
  Report Type: Spontaneous
  Country: CA (occurrence: CA)
  Receive Date: 20130128
  Receipt Date: 20130128
  Transmission Date: 20140127
  Serious: Yes (Other)
  Sender: FDA-Public Use
  Company Number: PHHY2009CA34714

PATIENT
  Sex: Male

DRUGS (3)
  1. SANDOSTATIN LAR [Suspect]
     Indication: PANCREATIC NEUROENDOCRINE TUMOUR
     Dosage: 30 MG,EVERY FOUR WEEKS
     Route: 030
     Dates: start: 20080528
  2. SANDOSTATIN LAR [Suspect]
     Dosage: 30 MG, ONCE A MONTH
     Route: 030
  3. SANDOSTATIN LAR [Suspect]
     Dosage: 30 MG, EVERY FOUR WEEKS
     Route: 030

REACTIONS (4)
  - Cachexia [Unknown]
  - Blood pressure increased [Unknown]
  - Hypoglycaemia [Unknown]
  - Somnolence [Unknown]
